FAERS Safety Report 6234257-1 (Version None)
Quarter: 2009Q2

REPORT INFORMATION
  Report Type: 
  Country: None (occurrence: None)
  Receive Date: 20090618
  Receipt Date: 20090615
  Transmission Date: 20091009
  Serious: Yes (Hospitalization)
  Sender: FDA-Public Use
  Company Number: FR-JNJFOC-20090604708

PATIENT
  Age: 61 Year
  Sex: Male

DRUGS (9)
  1. OFLOCET [Suspect]
     Indication: SEPSIS
     Route: 042
  2. RIFADIN [Suspect]
     Indication: SEPSIS
     Route: 048
  3. VANCOMYCINE [Suspect]
     Indication: SEPSIS
     Route: 042
  4. ORBENIN CAP [Concomitant]
     Indication: SEPSIS
     Route: 065
  5. DURAGESIC-100 [Concomitant]
     Route: 065
  6. METFORMIN HCL [Concomitant]
     Route: 065
  7. PROZAC [Concomitant]
     Route: 065
  8. XATRAL [Concomitant]
     Route: 065
  9. SERENOA REPENS [Concomitant]
     Route: 065

REACTIONS (2)
  - EOSINOPHILIA [None]
  - RENAL FAILURE ACUTE [None]
